FAERS Safety Report 24071896 (Version 1)
Quarter: 2024Q3

REPORT INFORMATION
  Report Type: Report from Study
  Country: US (occurrence: US)
  Receive Date: 20240710
  Receipt Date: 20240710
  Transmission Date: 20241017
  Serious: No
  Sender: ROCHE
  Company Number: US-ROCHE-3148055

PATIENT
  Age: 4 Year
  Sex: Female
  Weight: 14.0 kg

DRUGS (16)
  1. EVRYSDI [Suspect]
     Active Substance: RISDIPLAM
     Indication: Spinal muscular atrophy
     Route: 048
  2. EVRYSDI [Suspect]
     Active Substance: RISDIPLAM
     Route: 050
  3. TYLENOL [Concomitant]
     Active Substance: ACETAMINOPHEN
  4. PROAIR HFA [Concomitant]
     Active Substance: ALBUTEROL SULFATE
  5. PROVENTIL [Concomitant]
     Active Substance: ALBUTEROL
  6. ZITHROMAX [Concomitant]
     Active Substance: AZITHROMYCIN DIHYDRATE
  7. CIPRODEX (UNITED STATES) [Concomitant]
  8. FLONASE [Concomitant]
     Active Substance: FLUTICASONE PROPIONATE
  9. HYDROCORTISONE [Concomitant]
     Active Substance: HYDROCORTISONE\HYDROCORTISONE ACETATE
  10. ATROVENT [Concomitant]
     Active Substance: IPRATROPIUM BROMIDE
  11. FLOXIN (UNITED STATES) [Concomitant]
  12. ZOFRAN [Concomitant]
     Active Substance: ONDANSETRON HYDROCHLORIDE
  13. GLYCOLAX [Concomitant]
     Active Substance: POLYETHYLENE GLYCOL 3350
  14. ORAPRED [Concomitant]
     Active Substance: PREDNISOLONE SODIUM PHOSPHATE
  15. SENOKOT [Concomitant]
     Active Substance: SENNOSIDES
  16. SODIUM CHLORIDE [Concomitant]
     Active Substance: SODIUM CHLORIDE

REACTIONS (6)
  - Pyrexia [Recovered/Resolved]
  - Heart rate increased [Unknown]
  - COVID-19 [Unknown]
  - Vomiting [Recovered/Resolved]
  - Facial paresis [Unknown]
  - Lagophthalmos [Unknown]

NARRATIVE: CASE EVENT DATE: 20220723
